FAERS Safety Report 4643609-2 (Version None)
Quarter: 2005Q2

REPORT INFORMATION
  Report Type: 
  Country: None (occurrence: None)
  Receive Date: 20050425
  Receipt Date: 20050413
  Transmission Date: 20051028
  Serious: Yes (Other)
  Sender: FDA-Public Use
  Company Number: GBWYE583613APR05

PATIENT
  Age: 61 Year
  Sex: Male
  Weight: 71.6 kg

DRUGS (11)
  1. ENBREL [Suspect]
     Indication: RHEUMATOID ARTHRITIS
     Dosage: 25MG FREQUENCY UNKNOWN
     Route: 058
     Dates: start: 20040724, end: 20041215
  2. FOLIC ACID [Concomitant]
     Indication: RHEUMATOID ARTHRITIS
     Dosage: UNKNOWN
     Route: 048
  3. SULFASALAZINE [Concomitant]
     Route: 048
  4. HYDROXYCHLOROQUINE SULFATE [Concomitant]
     Route: 048
  5. SIMVASTATIN [Concomitant]
     Route: 048
  6. CO-PROXAMOL [Concomitant]
     Dosage: PRN
  7. DICLOFENAC SODIUM [Concomitant]
  8. BENDROFLUMETHIAZIDE [Concomitant]
  9. RAMIPRIL [Concomitant]
  10. CAPTOPRIL [Concomitant]
  11. METHOTREXATE [Concomitant]
     Dates: start: 20030301

REACTIONS (1)
  - TESTICULAR INFARCTION [None]
